FAERS Safety Report 6915534-5 (Version None)
Quarter: 2010Q3

REPORT INFORMATION
  Report Type: 
  Country: None (occurrence: None)
  Receive Date: 20100804
  Receipt Date: 20100728
  Transmission Date: 20110219
  Serious: Yes (Hospitalization)
  Sender: FDA-Public Use
  Company Number: 2010SP037409

PATIENT
  Age: 54 Year
  Sex: Male
  Weight: 63 kg

DRUGS (9)
  1. INTRON A [Suspect]
     Indication: HEPATITIS C
     Dosage: 3 MIU;TIW;IM ; 1.5 MIU;TIW;IM ; 1.5 MIU;BIW;IM ; 1.5 MIU;QW;IM
     Route: 030
     Dates: end: 20081202
  2. INTRON A [Suspect]
     Indication: HEPATITIS C
     Dosage: 3 MIU;TIW;IM ; 1.5 MIU;TIW;IM ; 1.5 MIU;BIW;IM ; 1.5 MIU;QW;IM
     Route: 030
     Dates: start: 20070714
  3. PEG-INTRON [Suspect]
     Indication: HEPATITIS C
     Dosage: 100 MCG;QW;SC ; QW;SC
     Route: 058
     Dates: start: 20070207, end: 20070307
  4. PEG-INTRON [Suspect]
     Indication: HEPATITIS C
     Dosage: 100 MCG;QW;SC ; QW;SC
     Route: 058
     Dates: start: 20070203, end: 20070324
  5. REBETOL [Suspect]
     Indication: HEPATITIS C
     Dosage: 800 MG;QD;PO ; PO
     Route: 048
     Dates: start: 20070207, end: 20070331
  6. REBETOL [Suspect]
     Indication: HEPATITIS C
     Dosage: 800 MG;QD;PO ; PO
     Route: 048
     Dates: start: 20070203
  7. LEMIGEN (GLYCYRRHIZIN /GLYCINE / CYSTEINE COMBINED DRUG) [Concomitant]
  8. GLYCYRON [Concomitant]
  9. URSO 250 [Concomitant]

REACTIONS (1)
  - MYELODYSPLASTIC SYNDROME [None]
